FAERS Safety Report 25318838 (Version 1)
Quarter: 2025Q2

REPORT INFORMATION
  Report Type: Spontaneous
  Country: FR (occurrence: FR)
  Receive Date: 20250515
  Receipt Date: 20250515
  Transmission Date: 20250716
  Serious: Yes (Other)
  Sender: RANBAXY
  Company Number: FR-SUN PHARMACEUTICAL INDUSTRIES LTD-2025RR-507702

PATIENT
  Age: 38 Year
  Sex: Male
  Weight: 110 kg

DRUGS (3)
  1. TESTOSTERONE [Suspect]
     Active Substance: TESTOSTERONE
     Indication: Product used for unknown indication
     Dosage: 250 MG/WEEK FOR 2 MONTHS THEN STOP FOR 2 MONTHS
     Route: 030
     Dates: start: 202302
  2. TESTOSTERONE [Suspect]
     Active Substance: TESTOSTERONE
     Indication: Product used for unknown indication
     Dosage: 30 MG/WEEK FOR 2 MONTHS THEN STOP FOR 2 MONTHS
     Route: 030
     Dates: start: 202308
  3. TRENBOLONE [Concomitant]
     Active Substance: TRENBOLONE
     Indication: Product used for unknown indication
     Dosage: 100 MILLIGRAM, 1/WEEK
     Route: 030
     Dates: start: 202405, end: 202407

REACTIONS (3)
  - Drug use disorder [Not Recovered/Not Resolved]
  - Sleep disorder [Not Recovered/Not Resolved]
  - Aggression [Not Recovered/Not Resolved]

NARRATIVE: CASE EVENT DATE: 20230101
